FAERS Safety Report 8074430-3 (Version None)
Quarter: 2012Q1

REPORT INFORMATION
  Report Type: 
  Country: None (occurrence: None)
  Receive Date: 20120126
  Receipt Date: 20120120
  Transmission Date: 20120608
  Serious: Yes (Other)
  Sender: FDA-Public Use
  Company Number: JP-GLAXOSMITHKLINE-B0777276A

PATIENT
  Sex: Male

DRUGS (5)
  1. ASVERIN [Concomitant]
     Route: 048
  2. RELENZA [Suspect]
     Route: 055
     Dates: start: 20120120, end: 20120120
  3. RELENZA [Suspect]
     Indication: PRODUCT USED FOR UNKNOWN INDICATION
     Route: 055
     Dates: start: 20110101, end: 20110101
  4. AZUNOL [Concomitant]
     Route: 065
  5. MUCODYNE [Concomitant]
     Route: 048

REACTIONS (2)
  - ABNORMAL BEHAVIOUR [None]
  - AGGRESSION [None]
